FAERS Safety Report 17536190 (Version 1)
Quarter: 2020Q1

REPORT INFORMATION
  Report Type: Report from Study
  Country: US (occurrence: US)
  Receive Date: 20200313
  Receipt Date: 20200313
  Transmission Date: 20200409
  Serious: Yes (Disabling)
  Sender: FDA-Public Use
  Company Number: US-BTG-202000050

PATIENT
  Age: 79 Year
  Sex: Male

DRUGS (6)
  1. CROFAB [Suspect]
     Active Substance: CROTALIDAE POLYVALENT IMMUNE FAB (OVINE)
     Indication: SNAKE BITE
     Dosage: 2 VIALS MAINTENANCE DOSE
     Route: 065
     Dates: start: 201906
  2. CROFAB [Suspect]
     Active Substance: CROTALIDAE POLYVALENT IMMUNE FAB (OVINE)
     Indication: SNAKE BITE
     Dosage: 2 VIALS MAINTENANCE DOSE
     Route: 065
     Dates: start: 201906
  3. CROFAB [Suspect]
     Active Substance: CROTALIDAE POLYVALENT IMMUNE FAB (OVINE)
     Indication: SNAKE BITE
     Dosage: 10 VIALS LOADING DOSE
     Route: 065
     Dates: start: 201906
  4. CROFAB [Suspect]
     Active Substance: CROTALIDAE POLYVALENT IMMUNE FAB (OVINE)
     Indication: SNAKE BITE
     Dosage: 2 VIALS LOADING DOSE
     Route: 065
     Dates: start: 201906
  5. OPIOIDS [Suspect]
     Active Substance: UNSPECIFIED INGREDIENT
     Indication: PRODUCT USED FOR UNKNOWN INDICATION
     Dosage: UNKNOWN
     Route: 065
  6. CROFAB [Suspect]
     Active Substance: CROTALIDAE POLYVALENT IMMUNE FAB (OVINE)
     Indication: SNAKE BITE
     Dosage: 2 VIALS MAINTENANCE DOSE
     Route: 065
     Dates: start: 201906

REACTIONS (5)
  - Blister [Unknown]
  - Musculoskeletal stiffness [Unknown]
  - Prothrombin time prolonged [Unknown]
  - Blood fibrinogen decreased [Unknown]
  - Debridement [Unknown]

NARRATIVE: CASE EVENT DATE: 201906
